FAERS Safety Report 18214277 (Version 1)
Quarter: 2020Q3

REPORT INFORMATION
  Report Type: Spontaneous
  Country: US (occurrence: US)
  Receive Date: 20200831
  Receipt Date: 20200831
  Transmission Date: 20201103
  Serious: No
  Sender: FDA-Public Use
  Company Number: US-BAYER-2020-182265

PATIENT
  Age: 67 Year
  Sex: Female

DRUGS (2)
  1. MIRALAX [Suspect]
     Active Substance: POLYETHYLENE GLYCOL 3350
     Indication: GASTROINTESTINAL DISORDER
     Dosage: 17 G
     Route: 048
     Dates: start: 20200826, end: 20200828
  2. LINZESS [Concomitant]
     Active Substance: LINACLOTIDE
     Dosage: UNK

REACTIONS (2)
  - Dehydration [Unknown]
  - Drug ineffective [Unknown]

NARRATIVE: CASE EVENT DATE: 202008
